FAERS Safety Report 8303127-7 (Version None)
Quarter: 2012Q2

REPORT INFORMATION
  Report Type: 
  Country: None (occurrence: None)
  Receive Date: 20120423
  Receipt Date: 20120412
  Transmission Date: 20120825
  Serious: Yes (Hospitalization)
  Sender: FDA-Public Use
  Company Number: CZ-BIOGENIDEC-2012BI010004

PATIENT
  Age: 35 Year
  Sex: Female

DRUGS (7)
  1. MAGNESII LACTICI [Concomitant]
     Indication: MUSCLE SPASTICITY
     Route: 048
     Dates: start: 20100103
  2. BONIVA [Concomitant]
     Indication: OSTEOPOROSIS
     Route: 048
     Dates: start: 20080414
  3. CIPROFLOXACIN HCL [Concomitant]
     Indication: URINARY TRACT INFECTION
     Dates: start: 20120315, end: 20120320
  4. CLONAZEPAM [Concomitant]
     Indication: TREMOR
     Route: 048
     Dates: start: 20080729
  5. VIREGYT K [Concomitant]
     Indication: INFECTION PROPHYLAXIS
     Route: 048
     Dates: start: 20011030
  6. TYSABRI [Suspect]
     Indication: RELAPSING-REMITTING MULTIPLE SCLEROSIS
     Route: 042
     Dates: start: 20090115
  7. CALTRATE PLUS [Concomitant]
     Indication: OSTEOPOROSIS
     Route: 048
     Dates: start: 20080414

REACTIONS (2)
  - CERVICAL VERTEBRAL FRACTURE [None]
  - THORACIC VERTEBRAL FRACTURE [None]
